FAERS Safety Report 16257668 (Version 1)
Quarter: 2019Q2

REPORT INFORMATION
  Report Type: Spontaneous
  Country: FR (occurrence: FR)
  Receive Date: 20190430
  Receipt Date: 20190430
  Transmission Date: 20190711
  Serious: Yes (Death)
  Sender: FDA-Public Use
  Company Number: FR-TEVA-2019-FR-1044943

PATIENT
  Age: 65 Year
  Sex: Female
  Weight: 92 kg

DRUGS (11)
  1. CEFTRIAXONE MYLAN [Suspect]
     Active Substance: CEFTRIAXONE
     Indication: UROSEPSIS
     Dosage: 1 GRAM DAILY;
     Route: 042
     Dates: start: 20190227, end: 20190227
  2. CHIBRO CADRON, COLLYRE EN FLACON [Suspect]
     Active Substance: DEXAMETHASONE SODIUM PHOSPHATE\NEOMYCIN SULFATE
     Indication: PRODUCT USED FOR UNKNOWN INDICATION
     Dosage: 1 GTT DAILY; 1 DROP PER EYE
     Route: 047
     Dates: start: 20190225, end: 20190227
  3. CEFTAZIDIME MYLAN [Suspect]
     Active Substance: CEFTAZIDIME
     Indication: SEPTIC SHOCK
     Route: 042
     Dates: start: 20190301, end: 20190302
  4. EVOLTRA [Suspect]
     Active Substance: CLOFARABINE
     Indication: BONE MARROW TRANSPLANT
     Dosage: 60 MILLIGRAM DAILY;
     Route: 042
     Dates: start: 20190225, end: 20190301
  5. EMEND [Suspect]
     Active Substance: APREPITANT
     Indication: BONE MARROW TRANSPLANT
     Dosage: 125MG J1 THEN 80MG
     Route: 048
     Dates: start: 20190225, end: 20190227
  6. VORICONAZOLE ARROW [Suspect]
     Active Substance: VORICONAZOLE
     Indication: ANTIBIOTIC PROPHYLAXIS
     Dosage: 720 MILLIGRAM DAILY;
     Route: 042
     Dates: start: 20190226, end: 20190306
  7. ONDANSETRON [Suspect]
     Active Substance: ONDANSETRON
     Indication: ANTIEMETIC SUPPORTIVE CARE
     Dosage: 2 DOSAGE FORMS DAILY;
     Route: 042
     Dates: start: 20190226, end: 20190227
  8. VANCOMYCINE SANDOZ [Suspect]
     Active Substance: VANCOMYCIN
     Indication: PRODUCT USED FOR UNKNOWN INDICATION
     Route: 042
     Dates: start: 20190302, end: 20190303
  9. IMIPENEM CILASTATINE MYLAN [Suspect]
     Active Substance: IMIPENEM
     Indication: SEPTIC SHOCK
     Route: 042
     Dates: start: 20190302, end: 20190308
  10. CYTARABINE ACCORD [Suspect]
     Active Substance: CYTARABINE
     Indication: SURGICAL PRECONDITIONING
     Dosage: 2000 MILLIGRAM DAILY;
     Route: 042
     Dates: start: 20190225, end: 20190301
  11. PROPOFOL LIPURO [Suspect]
     Active Substance: PROPOFOL
     Indication: INDUCTION OF ANAESTHESIA
     Route: 042
     Dates: start: 20190228, end: 20190228

REACTIONS (1)
  - Toxic epidermal necrolysis [Fatal]

NARRATIVE: CASE EVENT DATE: 20190303
